FAERS Safety Report 5186397-6 (Version None)
Quarter: 2006Q4

REPORT INFORMATION
  Report Type: 
  Country: None (occurrence: None)
  Receive Date: 20061220
  Receipt Date: 20061201
  Transmission Date: 20070319
  Serious: Yes (Hospitalization, Other)
  Sender: FDA-Public Use
  Company Number: JP-SHR-JP-2006-037464

PATIENT
  Age: 71 Year
  Sex: Male
  Weight: 70 kg

DRUGS (2)
  1. MAGNEVIST [Suspect]
     Dosage: UNK, 1 DOSE
     Dates: start: 20061127, end: 20061127
  2. PROSTAL [Concomitant]
     Dosage: 2 TAB(S), 2X/DAY
     Route: 048
     Dates: start: 20061018, end: 20061128

REACTIONS (3)
  - LIVER DISORDER [None]
  - PYREXIA [None]
  - RASH GENERALISED [None]
